FAERS Safety Report 23563685 (Version 1)
Quarter: 2024Q1

REPORT INFORMATION
  Report Type: Report from Study
  Country: US (occurrence: US)
  Receive Date: 20240226
  Receipt Date: 20240226
  Transmission Date: 20240409
  Serious: Yes (Hospitalization)
  Sender: FDA-Public Use
  Company Number: US-JNJFOC-20240246166

PATIENT
  Age: 41 Year
  Sex: Female

DRUGS (2)
  1. STELARA [Suspect]
     Active Substance: USTEKINUMAB
     Indication: Crohn^s disease
     Route: 040
     Dates: start: 202312
  2. STELARA [Suspect]
     Active Substance: USTEKINUMAB
     Route: 058
     Dates: start: 20240208

REACTIONS (5)
  - Pain [Unknown]
  - Chest pain [Unknown]
  - Feeling hot [Unknown]
  - Blood pressure increased [Unknown]
  - Erythema [Unknown]

NARRATIVE: CASE EVENT DATE: 20240208
